FAERS Safety Report 15702262 (Version 1)
Quarter: 2018Q4

REPORT INFORMATION
  Report Type: Report from Study
  Country: ES (occurrence: ES)
  Receive Date: 20181209
  Receipt Date: 20181209
  Transmission Date: 20190205
  Serious: Yes (Life-Threatening, Hospitalization)
  Sender: FDA-Public Use
  Company Number: ES-TEVA-2018-ES-983960

PATIENT
  Age: 7 Year
  Sex: Female
  Weight: 36.3 kg

DRUGS (12)
  1. VINCRISTINA SULFATO (809SU) [Suspect]
     Active Substance: VINCRISTINE SULFATE
     Indication: ACUTE LYMPHOCYTIC LEUKAEMIA
     Dosage: 1.7 MILLIGRAM DAILY;
     Route: 042
     Dates: start: 20171222, end: 20171222
  2. DEXAMETASONA (722A) [Interacting]
     Active Substance: DEXAMETHASONE
     Indication: ACUTE LYMPHOCYTIC LEUKAEMIA
     Route: 042
     Dates: start: 20171220, end: 20171225
  3. ERWINA - ERWINASE 10.000 UI INYECTABLE [REINO UNIDO] [Interacting]
     Active Substance: ASPARAGINASE
     Indication: ACUTE LYMPHOCYTIC LEUKAEMIA
     Route: 030
     Dates: start: 20171129, end: 20171226
  4. MEROPENEM (7155A) [Concomitant]
     Active Substance: MEROPENEM
     Route: 042
     Dates: start: 20171211, end: 20171212
  5. VANCOMICINA (3197A) [Concomitant]
     Active Substance: VANCOMYCIN
     Route: 042
     Dates: start: 20171211, end: 20171215
  6. FOSCARNET SODICO (2427SO) [Concomitant]
     Route: 042
     Dates: start: 20171212, end: 20171213
  7. AMBISOME 50 MG POLVO PARA DISPERSI?N PARA PERFUSI?N , 10 VIALES [Concomitant]
     Dosage: 110 MILLIGRAM DAILY;
     Route: 042
     Dates: start: 20171211, end: 20180129
  8. CEFTAZIDIMA (189A) [Concomitant]
     Route: 042
     Dates: start: 20171219, end: 20171226
  9. LEVOFLOXACINO (2791A) [Concomitant]
     Active Substance: LEVOFLOXACIN
     Dosage: 370 MILLIGRAM DAILY;
     Route: 042
     Dates: start: 20171212, end: 20171219
  10. COLECALCIFEROL (36A) [Concomitant]
     Dosage: 1200 IU (INTERNATIONAL UNIT) DAILY;
     Route: 048
     Dates: start: 20171215, end: 20180129
  11. SEPTRIN 80 MG/400 MG COMPRIMIDOS , 20 COMPRIMIDOS [Concomitant]
     Active Substance: SULFAMETHOXAZOLE\TRIMETHOPRIM
     Indication: PROPHYLAXIS
     Route: 048
     Dates: start: 20171211, end: 20180129
  12. ACICLOVIR (201A) [Concomitant]
     Active Substance: ACYCLOVIR
     Indication: PROPHYLAXIS
     Route: 048
     Dates: start: 20171211, end: 20180103

REACTIONS (2)
  - Septic shock [Recovered/Resolved]
  - Drug interaction [Unknown]

NARRATIVE: CASE EVENT DATE: 20171226
